FAERS Safety Report 5776276-5 (Version None)
Quarter: 2008Q2

REPORT INFORMATION
  Report Type: 
  Country: None (occurrence: None)
  Receive Date: 20080617
  Receipt Date: 20080617
  Transmission Date: 20081010
  Serious: Yes (Hospitalization)
  Sender: FDA-Public Use
  Company Number: None

PATIENT
  Age: 68 Year
  Sex: Female
  Weight: 54.7 kg

DRUGS (7)
  1. AMIODARONE HCL [Suspect]
     Indication: ATRIAL FIBRILLATION
     Dosage: 100MG DAILY PO
     Route: 048
     Dates: start: 20030101
  2. METOPROLOL [Concomitant]
  3. EFFEXOR [Concomitant]
  4. SYNTHROID [Concomitant]
  5. LOVASTATIN [Concomitant]
  6. ASPIRIN [Concomitant]
  7. XANAX [Concomitant]

REACTIONS (2)
  - ACUTE RESPIRATORY DISTRESS SYNDROME [None]
  - DRUG TOXICITY [None]
